FAERS Safety Report 11162215 (Version 2)
Quarter: 2015Q2

REPORT INFORMATION
  Report Type: Spontaneous
  Country: US (occurrence: None)
  Receive Date: 20150602
  Receipt Date: 20150615
  Transmission Date: 20150821
  Serious: Yes (Other)
  Sender: FDA-Public Use
  Company Number: FK201502509

PATIENT
  Age: 66 Year
  Sex: Male

DRUGS (7)
  1. PREDNISONE. [Suspect]
     Active Substance: PREDNISONE
     Indication: PLASMABLASTIC LYMPHOMA
     Dosage: ON DAYS 1, 4, 8 AND 11, 21 DAY CYCLE
  2. CYTARABINE. [Concomitant]
     Active Substance: CYTARABINE
  3. BORTEZOMIB [Suspect]
     Active Substance: BORTEZOMIB
     Indication: PLASMABLASTIC LYMPHOMA
     Dosage: 1.3 MG/M2, ON DAYS 1, 4, 8 AND 11, 21 DAY CYCLE
     Route: 058
  4. CYCLOPHOSPHAMIDE. [Suspect]
     Active Substance: CYCLOPHOSPHAMIDE
     Indication: PLASMABLASTIC LYMPHOMA
     Dosage: ON DAYS 1, 4, 8 AND 11, 21 DAY CYCLE
  5. VINCRISTINE [Suspect]
     Active Substance: VINCRISTINE
     Indication: PLASMABLASTIC LYMPHOMA
     Dosage: ON DAYS 1, 4, 8 AND 11, 21 DAY CYCLE
  6. ETOPOSIDE. [Suspect]
     Active Substance: ETOPOSIDE
     Indication: PLASMABLASTIC LYMPHOMA
     Dosage: ON DAYS 1, 4, 8 AND 11, 21 DAY CYCLE
  7. DOXORUBICIN [Suspect]
     Active Substance: DOXORUBICIN
     Indication: PLASMABLASTIC LYMPHOMA
     Dosage: ON DAYS 1, 4, 8 AND 11, 21 DAY CYCLE

REACTIONS (2)
  - Small intestinal obstruction [None]
  - Thrombocytopenia [None]
